FAERS Safety Report 17952089 (Version 1)
Quarter: 2020Q2

REPORT INFORMATION
  Report Type: Spontaneous
  Country: GB (occurrence: GB)
  Receive Date: 20200626
  Receipt Date: 20200626
  Transmission Date: 20200714
  Serious: Yes (Other)
  Sender: FDA-Public Use
  Company Number: NVSC2020GB179798

PATIENT
  Age: 59 Year
  Sex: Female
  Weight: 69.39 kg

DRUGS (1)
  1. AMOXICILLIN TRIHYDRATE [Suspect]
     Active Substance: AMOXICILLIN
     Indication: PRODUCT USED FOR UNKNOWN INDICATION
     Dosage: 1500 MG, QD
     Route: 048
     Dates: start: 20200422, end: 20200425

REACTIONS (7)
  - Pain [Unknown]
  - Feeling hot [Unknown]
  - Inflammation [Unknown]
  - Pruritus [Unknown]
  - Rash papular [Recovered/Resolved]
  - Skin reaction [Recovered/Resolved with Sequelae]
  - Erythema [Unknown]

NARRATIVE: CASE EVENT DATE: 20200423
